FAERS Safety Report 16339018 (Version 1)
Quarter: 2019Q2

REPORT INFORMATION
  Report Type: Spontaneous
  Country: US (occurrence: US)
  Receive Date: 20190521
  Receipt Date: 20190521
  Transmission Date: 20190711
  Serious: No
  Sender: FDA-Public Use
  Company Number: US-MYLANLABS-2019M1041816

PATIENT
  Sex: Female
  Weight: 88 kg

DRUGS (1)
  1. FENTANYL TRANSDERMAL SYSTEM [Suspect]
     Active Substance: FENTANYL
     Indication: PAIN
     Dosage: UNK
     Route: 062
     Dates: start: 201601

REACTIONS (4)
  - Product residue present [Unknown]
  - Product adhesion issue [Unknown]
  - Application site reaction [Unknown]
  - Drug ineffective [Unknown]
